FAERS Safety Report 5637200-9 (Version None)
Quarter: 2008Q1

REPORT INFORMATION
  Report Type: 
  Country: None (occurrence: None)
  Receive Date: 20080221
  Receipt Date: 20080204
  Transmission Date: 20080703
  Serious: Yes (Other)
  Sender: FDA-Public Use
  Company Number: 2008003110

PATIENT
  Age: 56 Year
  Sex: Male
  Weight: 83.9 kg

DRUGS (1)
  1. ROGAINE [Suspect]
     Indication: ALOPECIA
     Dosage: 1 ML FOR 3 DAYS, TOPICAL
     Route: 061

REACTIONS (2)
  - SECRETION DISCHARGE [None]
  - SKIN DISCOLOURATION [None]
